FAERS Safety Report 4588634-5 (Version None)
Quarter: 2005Q1

REPORT INFORMATION
  Report Type: 
  Country: None (occurrence: None)
  Receive Date: 20050222
  Receipt Date: 20050127
  Transmission Date: 20050727
  Serious: Yes (Death, Life-Threatening)
  Sender: FDA-Public Use
  Company Number: 2005-01-1497

PATIENT
  Age: 73 Year
  Sex: Male
  Weight: 62 kg

DRUGS (12)
  1. INTEGRILIN [Suspect]
     Indication: THERAPEUTIC PROCEDURE
     Route: 042
     Dates: start: 20050114
  2. HEPARIN [Suspect]
     Indication: DRUG USE FOR UNKNOWN INDICATION
     Route: 042
  3. ASPIRIN [Suspect]
     Indication: ILL-DEFINED DISORDER
     Route: 065
  4. NADOLOL [Concomitant]
     Route: 065
  5. NICOTINIC ACID [Concomitant]
     Route: 065
  6. SIMVASTATIN [Concomitant]
     Route: 065
  7. FOLIC ACID [Concomitant]
     Route: 065
  8. RAMIPRIL [Concomitant]
     Route: 065
  9. VITAMIN E [Concomitant]
     Route: 065
  10. VITAMIN C [Concomitant]
     Route: 065
  11. CALCIUM GLUCONATE [Concomitant]
     Route: 065
  12. PSEUDOEPHEDRINE HYDROCHLORIDE + TRIPROLIDINE HYDROCHLORIDE [Concomitant]
     Route: 065

REACTIONS (1)
  - HAEMORRHAGE INTRACRANIAL [None]
